FAERS Safety Report 4846595-5 (Version None)
Quarter: 2005Q4

REPORT INFORMATION
  Report Type: 
  Country: None (occurrence: None)
  Receive Date: 20051202
  Receipt Date: 20051118
  Transmission Date: 20060501
  Serious: Yes (Hospitalization)
  Sender: FDA-Public Use
  Company Number: CIP05002740

PATIENT
  Age: 53 Year
  Sex: Female

DRUGS (4)
  1. ACTONEL [Suspect]
     Indication: OSTEOPOROSIS
     Dosage: 2.5 MG DAILY, ORAL
     Route: 048
     Dates: start: 20050801
  2. GLAKAY (MENATETRENONE) [Suspect]
     Dosage: 45 MG DAILY, ORAL
     Route: 048
     Dates: start: 20050801
  3. FAMOTIDINE [Suspect]
     Dosage: ORAL
     Route: 048
     Dates: start: 20050801
  4. LENDORM [Suspect]
     Dosage: ORAL
     Route: 048
     Dates: start: 20050801

REACTIONS (2)
  - HEPATIC ENZYME ABNORMAL [None]
  - LIVER DISORDER [None]
